FAERS Safety Report 4740961-4 (Version None)
Quarter: 2005Q3

REPORT INFORMATION
  Report Type: 
  Country: None (occurrence: None)
  Receive Date: 20050810
  Receipt Date: 20050803
  Transmission Date: 20060218
  Serious: Yes (Death)
  Sender: FDA-Public Use
  Company Number: 200516990GDDC

PATIENT
  Age: 46 Year
  Sex: Female

DRUGS (3)
  1. RIFAMPICIN [Suspect]
     Indication: PLEURISY
     Dosage: DOSE: UNK
  2. ISONIAZID [Suspect]
     Indication: PLEURISY
     Dosage: DOSE: UNK
     Route: 048
  3. PYRAZINAMIDE [Suspect]
     Indication: PLEURISY
     Dosage: DOSE: UNK
     Route: 048

REACTIONS (11)
  - ASCITES [None]
  - COAGULOPATHY [None]
  - CONVULSION [None]
  - DEPRESSED LEVEL OF CONSCIOUSNESS [None]
  - HEPATIC ATROPHY [None]
  - HEPATIC ENCEPHALOPATHY [None]
  - HEPATITIS FULMINANT [None]
  - HYPOGLYCAEMIA [None]
  - JAUNDICE [None]
  - LIVER FUNCTION TEST ABNORMAL [None]
  - PYREXIA [None]
